FAERS Safety Report 9492623 (Version 1)
Quarter: 2013Q3

REPORT INFORMATION
  Report Type: Spontaneous
  Country: DE (occurrence: DE)
  Receive Date: 20130830
  Receipt Date: 20130830
  Transmission Date: 20140515
  Serious: Yes (Other)
  Sender: FDA-Public Use
  Company Number: DE-TEVA-428362GER

PATIENT
  Sex: Male

DRUGS (4)
  1. METOPROLOL-CT 50 MG TABLETTEN [Suspect]
     Indication: HYPERTENSION
     Dosage: 50 MILLIGRAM DAILY;
     Route: 048
  2. KARVEZIDE 150/12,5 MG [Concomitant]
     Dosage: 1 DF = 150 MG IRBESARTAN PLUS 12.5 MG HYDROCHLOROTHIAZIDE
     Route: 048
  3. IRON [Concomitant]
     Route: 048
  4. VITAMIN D [Concomitant]
     Route: 048

REACTIONS (2)
  - Normal tension glaucoma [Not Recovered/Not Resolved]
  - Visual field defect [Not Recovered/Not Resolved]
